FAERS Safety Report 4538207-5 (Version None)
Quarter: 2004Q4

REPORT INFORMATION
  Report Type: 
  Country: None (occurrence: None)
  Receive Date: 20041221
  Receipt Date: 20041208
  Transmission Date: 20050328
  Serious: Yes (Other)
  Sender: FDA-Public Use
  Company Number: 2004108931

PATIENT
  Age: 69 Year
  Sex: Female
  Weight: 77.1115 kg

DRUGS (18)
  1. DETROL LA [Suspect]
     Indication: MICTURITION URGENCY
     Dosage: 4 MG (4 MG, QD, INTERVAL: EVERY NIGHT), ORAL
     Route: 048
  2. FEXOFENADINE HYDROCHLORIDE [Concomitant]
  3. ESOMEPRAZOLE (ESOMEPRAZOLE) [Concomitant]
  4. CLOPIDOGREL BISULFATE [Concomitant]
  5. MONTELUKAST SODIUM (MONTELUKAST SODIUM) [Concomitant]
  6. PAROXETINE HCL [Concomitant]
  7. AMLODIPINE BESYLATE [Concomitant]
  8. PRAMIPREXOLE (PRAMIPEXOLE) [Concomitant]
  9. SERETIDE MITE (FLUTICASONE PROPIONATE, SALMETEROL XINAFOATE) [Concomitant]
  10. BUDESONIDE (BUDESONIDE) [Concomitant]
  11. AZELESTINE HYDROCHLORIDE (AZELESTINE HYDROCHLORIDE) [Concomitant]
  12. HYDRODIURIL (HYDROCHLOROTHIZIDE) [Concomitant]
  13. BEXTRA [Concomitant]
  14. LORAZEPAM [Concomitant]
  15. TOPIRAMATE [Concomitant]
  16. MULTIVITAMINS (ASCORBIC ACID/ERGOCALCIFEROL/FOLIC ACID/NICOTINAMIDE/PA [Concomitant]
  17. SALBUTAMOL (SALBUTAMOL) [Concomitant]
  18. EZETIMIBE (EZETIMIBE) [Concomitant]

REACTIONS (4)
  - BLADDER OPERATION [None]
  - DRUG INEFFECTIVE [None]
  - SURGICAL PROCEDURE REPEATED [None]
  - URINARY INCONTINENCE [None]
